FAERS Safety Report 4847953-5 (Version None)
Quarter: 2005Q4

REPORT INFORMATION
  Report Type: 
  Country: None (occurrence: None)
  Receive Date: 20051206
  Receipt Date: 20051115
  Transmission Date: 20060501
  Serious: Yes (Death)
  Sender: FDA-Public Use
  Company Number: US200511000801

PATIENT
  Age: 53 Year
  Sex: Female

DRUGS (1)
  1. XIGRIS [Suspect]
     Dosage: INTRAVENOUS
     Route: 042
     Dates: start: 20051111, end: 20051114

REACTIONS (1)
  - DEATH [None]
